FAERS Safety Report 5863342-9 (Version None)
Quarter: 2008Q3

REPORT INFORMATION
  Report Type: 
  Country: None (occurrence: None)
  Receive Date: 20080828
  Receipt Date: 20080820
  Transmission Date: 20090109
  Serious: Yes (Other)
  Sender: FDA-Public Use
  Company Number: PHHY2008JP18586

PATIENT

DRUGS (2)
  1. ZOMETA [Suspect]
     Indication: OESOPHAGEAL CARCINOMA
     Route: 042
  2. CALSED [Concomitant]

REACTIONS (3)
  - DISEASE PROGRESSION [None]
  - RENAL FAILURE [None]
  - TUMOUR LYSIS SYNDROME [None]
